FAERS Safety Report 21510764 (Version 12)
Quarter: 2023Q1

REPORT INFORMATION
  Report Type: Report from Study
  Country: GB (occurrence: None)
  Receive Date: 20221026
  Receipt Date: 20230222
  Transmission Date: 20230418
  Serious: Yes (Hospitalization)
  Sender: FDA-Public Use
  Company Number: GB-ROCHE-3203598

PATIENT
  Age: 55 Year
  Sex: Female
  Weight: 80.9 kg

DRUGS (39)
  1. GLOFITAMAB [Suspect]
     Active Substance: GLOFITAMAB
     Indication: Marginal zone lymphoma
     Dosage: ON 27/SEP/2022 FROM 2:08 PM TO 4:10 PM, SHE RECEIVED MOST RECENT DOSE OF GLOFITAMAB PRIOR TO AE/SAE,
     Route: 042
     Dates: start: 20220517
  2. ATEZOLIZUMAB [Suspect]
     Active Substance: ATEZOLIZUMAB
     Indication: Marginal zone lymphoma
     Dosage: ON 27/SEP/2022 FROM 12:25 PM TO 12:56 PM, SHE RECEIVED MOST RECENT DOSE OF ATEZOLIZUMAB PRIOR TO AE/
     Route: 042
     Dates: start: 20220607
  3. OBINUTUZUMAB [Suspect]
     Active Substance: OBINUTUZUMAB
     Indication: Marginal zone lymphoma
     Dosage: ON 10/MAY/2022 FROM 10:46 AM TO 3:58 PM, SHE RECEIVED MOST RECENT DOSE OF OBINUTUZUMAB PRIOR TO AE/S
     Route: 042
     Dates: start: 20220510
  4. ZIRCONIUM ZR-89-DESFERRIOXAMINE-IAB22M2C [Suspect]
     Active Substance: ZIRCONIUM ZR-89-DESFERRIOXAMINE-IAB22M2C
     Indication: Marginal zone lymphoma
     Dosage: TOTAL VOLUME PRIOR AE/SAE 6.4 ML?ON 19/MAY/2022 FROM 12:01 PM TO 12:14 PM, SHE RECEIVED 89ZR-DF-IAB2
     Route: 042
     Dates: start: 20220505
  5. TOCILIZUMAB [Suspect]
     Active Substance: TOCILIZUMAB
     Indication: Marginal zone lymphoma
     Dosage: START DATE OF MOST RECENT DOSE OF STUDY DRUG?PRIOR TO AE/SAE 19/MAY/2022 , 100 ML, 9:52 AM TO 10:57
     Route: 042
     Dates: start: 20220519
  6. HYDROXOCOBALAMIN [Concomitant]
     Active Substance: HYDROXOCOBALAMIN
     Indication: Vitamin B12 deficiency
     Dates: start: 20220520
  7. HYDROXOCOBALAMIN [Concomitant]
     Active Substance: HYDROXOCOBALAMIN
     Indication: Vitamin B12 decreased
     Dates: start: 20220511
  8. METOCLOPRAMIDE [Concomitant]
     Active Substance: METOCLOPRAMIDE
     Indication: Nausea
     Dates: start: 20220812
  9. DEXAMETHASONE [Concomitant]
     Active Substance: DEXAMETHASONE
     Route: 042
     Dates: start: 20220927, end: 20220927
  10. ACETAMINOPHEN [Concomitant]
     Active Substance: ACETAMINOPHEN
     Indication: Febrile neutropenia
     Route: 048
     Dates: start: 20220927, end: 20220927
  11. CHLORPHENIRAMINE MALEATE [Concomitant]
     Active Substance: CHLORPHENIRAMINE MALEATE
     Route: 042
     Dates: start: 20220927, end: 20220927
  12. ZOPICLONE [Concomitant]
     Active Substance: ZOPICLONE
     Indication: Insomnia
     Dates: start: 20220316
  13. LANSOPRAZOLE [Concomitant]
     Active Substance: LANSOPRAZOLE
     Indication: Gastrointestinal disorder prophylaxis
     Dates: start: 20220316
  14. LANSOPRAZOLE [Concomitant]
     Active Substance: LANSOPRAZOLE
     Dates: start: 20221018
  15. CALCIUM\CHOLECALCIFEROL [Concomitant]
     Active Substance: CALCIUM\CHOLECALCIFEROL
     Dosage: BONE PROTECTION
     Dates: start: 20210902
  16. ACYCLOVIR [Concomitant]
     Active Substance: ACYCLOVIR
     Indication: Prophylaxis
     Dosage: VIRAL PROPHYLAXIS
     Dates: start: 20220512
  17. ALENDRONIC ACID [Concomitant]
     Active Substance: ALENDRONIC ACID
     Indication: Osteoporosis
     Dates: start: 202109
  18. PREGABALIN [Concomitant]
     Active Substance: PREGABALIN
     Indication: Tumour pain
     Dates: start: 20220316
  19. SODIUM CHLORIDE [Concomitant]
     Active Substance: SODIUM CHLORIDE
     Indication: Hypotension
     Dates: start: 20221015, end: 20221016
  20. CALCIUM CHLORIDE\POTASSIUM CHLORIDE\SODIUM CHLORIDE\SODIUM LACTATE [Concomitant]
     Active Substance: CALCIUM CHLORIDE\POTASSIUM CHLORIDE\SODIUM CHLORIDE\SODIUM LACTATE
     Indication: Hypotension
     Dates: start: 20221016, end: 20221018
  21. POTASSIUM CHLORIDE IN SODIUM CHLORIDE [Concomitant]
     Active Substance: POTASSIUM CHLORIDE\SODIUM CHLORIDE
     Indication: Hypokalaemia
     Dosage: 40MMOLS
     Dates: start: 20221016, end: 20221016
  22. POTASSIUM CHLORIDE [Concomitant]
     Active Substance: POTASSIUM CHLORIDE
     Indication: Hypokalaemia
     Dosage: 20 MMOLS/20 ML
     Dates: start: 20221017, end: 20221017
  23. POTASSIUM CHLORIDE [Concomitant]
     Active Substance: POTASSIUM CHLORIDE
     Dosage: DOSE 40 MMOLS /40ML
     Dates: start: 20221017, end: 20221017
  24. SODIUM GLYCEROPHOSPHATE [Concomitant]
     Active Substance: SODIUM GLYCEROPHOSPHATE
     Indication: Hypophosphataemia
     Dates: start: 20221017, end: 20221018
  25. CALCIUM CHLORIDE [Concomitant]
     Active Substance: CALCIUM CHLORIDE
     Indication: Hypocalcaemia
     Dates: start: 20221016, end: 20221016
  26. MIRTAZAPINE [Concomitant]
     Active Substance: MIRTAZAPINE
     Indication: Depression
     Dates: start: 202203
  27. GABAPENTIN [Concomitant]
     Active Substance: GABAPENTIN
     Indication: Arthralgia
     Dates: start: 20220906
  28. GABAPENTIN [Concomitant]
     Active Substance: GABAPENTIN
     Indication: Back pain
  29. OXYCODONE [Concomitant]
     Active Substance: OXYCODONE
     Indication: Arthralgia
     Dates: start: 20220927
  30. OXYCODONE [Concomitant]
     Active Substance: OXYCODONE
     Indication: Back pain
  31. OCTENISAN [HYETELLOSE;OCTENIDINE HYDROCHLORIDE;PROPYLENE GLYCOL] [Concomitant]
     Dates: start: 20221015, end: 20221031
  32. AMITRIPTYLINE [Concomitant]
     Active Substance: AMITRIPTYLINE
     Indication: Tumour pain
     Dates: start: 20220816
  33. HUMAN RED BLOOD CELL [Concomitant]
     Active Substance: HUMAN RED BLOOD CELL
     Indication: Anaemia
     Dates: start: 20221016, end: 20221018
  34. HUMAN RED BLOOD CELL [Concomitant]
     Active Substance: HUMAN RED BLOOD CELL
     Dates: start: 20221029, end: 20221029
  35. HUMAN RED BLOOD CELL [Concomitant]
     Active Substance: HUMAN RED BLOOD CELL
     Dates: start: 20221121, end: 20221121
  36. GLUCOSE;MAGNESIUM SULFATE [Concomitant]
     Indication: Hypomagnesaemia
     Dates: start: 20221015, end: 20221015
  37. MAGNESIUM SULFATE [Concomitant]
     Active Substance: MAGNESIUM SULFATE
     Indication: Hypomagnesaemia
     Dates: start: 20221017, end: 20221020
  38. MAGNESIUM GLYCEROPHOSPHATE [Concomitant]
     Active Substance: MAGNESIUM GLYCEROPHOSPHATE
     Indication: Hypomagnesaemia
     Dates: start: 20221026, end: 20221027
  39. MAGNESIUM ASPARTATE [Concomitant]
     Active Substance: MAGNESIUM ASPARTATE
     Indication: Hypomagnesaemia
     Dates: start: 20221027, end: 20221101

REACTIONS (2)
  - Febrile neutropenia [Not Recovered/Not Resolved]
  - Pneumonia fungal [Recovering/Resolving]

NARRATIVE: CASE EVENT DATE: 20221015
